FAERS Safety Report 4614762-1 (Version None)
Quarter: 2005Q2

REPORT INFORMATION
  Report Type: 
  Country: None (occurrence: None)
  Receive Date: 20050311
  Receipt Date: 20041222
  Transmission Date: 20051028
  Serious: No
  Sender: FDA-Public Use
  Company Number: 2004-BP-14292BP

PATIENT
  Age: 82 Year
  Sex: Female

DRUGS (7)
  1. SPIRIVA [Suspect]
     Indication: CHRONIC OBSTRUCTIVE PULMONARY DISEASE
     Dosage: 1 CAP QD (18 MG, 18 IN 1 D), IH
     Route: 055
     Dates: start: 20040601
  2. GABAPENTIN [Concomitant]
  3. ALBUTEROL NEBS (SALBUTAMOL) [Concomitant]
  4. ALBUTEROL [Concomitant]
  5. OXYGEN (OXYGEN) [Concomitant]
  6. ASPIRIN [Concomitant]
  7. ASPIRIN [Concomitant]

REACTIONS (2)
  - DIZZINESS [None]
  - DYSPNOEA [None]
